FAERS Safety Report 6736640-4 (Version None)
Quarter: 2010Q2

REPORT INFORMATION
  Report Type: 
  Country: None (occurrence: None)
  Receive Date: 20100521
  Receipt Date: 20100514
  Transmission Date: 20101027
  Serious: Yes (Hospitalization)
  Sender: FDA-Public Use
  Company Number: Z0002047A

PATIENT
  Sex: Female
  Weight: 42 kg

DRUGS (15)
  1. PAZOPANIB [Suspect]
     Indication: RENAL CELL CARCINOMA
     Dosage: 800MG PER DAY
     Route: 048
     Dates: start: 20090907, end: 20091013
  2. GLIMICRON [Concomitant]
     Indication: DIABETES MELLITUS
     Route: 048
     Dates: start: 20090410, end: 20091024
  3. LIPIDIL [Concomitant]
     Dosage: 1CAP IN THE MORNING
     Route: 048
     Dates: start: 20050622, end: 20091223
  4. ASPIRIN [Concomitant]
     Dosage: 1TAB IN THE MORNING
     Route: 048
     Dates: start: 20080314, end: 20091223
  5. FAMOTIDINE [Concomitant]
     Indication: GASTRITIS PROPHYLAXIS
     Dosage: 1TAB AT NIGHT
     Route: 048
     Dates: start: 20040729, end: 20091223
  6. MAGLAX [Concomitant]
     Indication: CONSTIPATION
     Dosage: 1TAB THREE TIMES PER DAY
     Route: 048
     Dates: start: 20000523, end: 20091223
  7. DIART [Concomitant]
     Indication: CARDIAC FAILURE
     Dosage: .5TAB IN THE MORNING
     Route: 048
     Dates: start: 20090204, end: 20091223
  8. XALATAN [Concomitant]
     Indication: OCULAR HYPERTENSION
     Dosage: 1DROP AT NIGHT
     Route: 047
     Dates: end: 20091020
  9. HYPADIL [Concomitant]
     Indication: OCULAR HYPERTENSION
     Dosage: 1DROP TWICE PER DAY
     Route: 047
     Dates: end: 20091020
  10. KARY UNI [Concomitant]
     Indication: CATARACT
     Dosage: 1DROP FOUR TIMES PER DAY
     Route: 047
     Dates: end: 20091020
  11. CANDESARTAN CILEXETIL [Concomitant]
     Indication: HYPERTENSION
     Dosage: 1TAB IN THE MORNING
     Route: 048
     Dates: start: 20090924, end: 20091021
  12. SYMMETREL [Concomitant]
     Indication: PARKINSONISM
     Dosage: 1TAB TWICE PER DAY
     Route: 048
     Dates: start: 20090917, end: 20091118
  13. MOHRUS TAPE [Concomitant]
     Dosage: 1PAT PER DAY
     Route: 061
     Dates: start: 20090925, end: 20091223
  14. UNKNOWN DRUG [Concomitant]
     Indication: DRY SKIN
     Route: 062
     Dates: start: 20090831, end: 20091223
  15. SYMMETREL [Concomitant]
     Dosage: 1TAB THREE TIMES PER DAY
     Route: 048
     Dates: start: 20091119, end: 20091223

REACTIONS (1)
  - CARDIAC FAILURE CONGESTIVE [None]
